FAERS Safety Report 24588795 (Version 1)
Quarter: 2024Q4

REPORT INFORMATION
  Report Type: Spontaneous
  Country: US (occurrence: None)
  Receive Date: 20241106
  Receipt Date: 20241106
  Transmission Date: 20250115
  Serious: No
  Sender: Public
  Company Number: None

PATIENT
  Age: 58 Year
  Sex: Female
  Weight: 77.11 kg

DRUGS (1)
  1. TIRZEPATIDE [Suspect]
     Active Substance: TIRZEPATIDE

REACTIONS (5)
  - Product compounding quality issue [None]
  - Product physical issue [None]
  - Nonspecific reaction [None]
  - Dysgeusia [None]
  - Product preparation error [None]

NARRATIVE: CASE EVENT DATE: 20241025
